FAERS Safety Report 5707587-7 (Version None)
Quarter: 2008Q2

REPORT INFORMATION
  Report Type: 
  Country: None (occurrence: None)
  Receive Date: 20080411
  Receipt Date: 20070302
  Transmission Date: 20081010
  Serious: Yes (Other)
  Sender: FDA-Public Use
  Company Number: 8021893

PATIENT
  Age: 4 Year
  Sex: Male
  Weight: 22.72 kg

DRUGS (3)
  1. METADATE CD [Suspect]
     Indication: ATTENTION DEFICIT/HYPERACTIVITY DISORDER
     Dosage: 10 MG /D
     Dates: start: 20060801, end: 20061101
  2. METADATE CD [Suspect]
     Indication: ATTENTION DEFICIT/HYPERACTIVITY DISORDER
     Dosage: 20 MG /D
     Dates: start: 20061101
  3. METADATE CD [Suspect]
     Indication: ATTENTION DEFICIT/HYPERACTIVITY DISORDER
     Dosage: 20 MG PO
     Route: 048
     Dates: start: 20070110

REACTIONS (2)
  - DISTURBANCE IN ATTENTION [None]
  - PHARMACEUTICAL PRODUCT COMPLAINT [None]
